FAERS Safety Report 14213727 (Version 3)
Quarter: 2017Q4

REPORT INFORMATION
  Report Type: Report from Study
  Country: CA (occurrence: CA)
  Receive Date: 20171122
  Receipt Date: 20171206
  Transmission Date: 20180321
  Serious: No
  Sender: FDA-Public Use
  Company Number: CA-BIOGEN-2017BI00486947

PATIENT
  Age: 48 Year
  Sex: Male

DRUGS (3)
  1. VITAMIN D [Concomitant]
     Active Substance: CHOLECALCIFEROL
     Indication: PRODUCT USED FOR UNKNOWN INDICATION
     Route: 065
  2. TYSABRI [Suspect]
     Active Substance: NATALIZUMAB
     Indication: MULTIPLE SCLEROSIS
     Dosage: INFUSED OVER 1HOUR
     Route: 042
     Dates: start: 20170825
  3. TELMISARTAN. [Concomitant]
     Active Substance: TELMISARTAN
     Indication: PRODUCT USED FOR UNKNOWN INDICATION
     Route: 065

REACTIONS (4)
  - Syncope [Recovered/Resolved]
  - Bilirubin conjugated increased [Unknown]
  - Blood bilirubin increased [Unknown]
  - Procedural anxiety [Not Recovered/Not Resolved]

NARRATIVE: CASE EVENT DATE: 20171116
